FAERS Safety Report 13518337 (Version 1)
Quarter: 2017Q2

REPORT INFORMATION
  Report Type: Spontaneous
  Country: PT (occurrence: PT)
  Receive Date: 20170505
  Receipt Date: 20170505
  Transmission Date: 20170830
  Serious: Yes (Other)
  Sender: FDA-Public Use
  Company Number: PHHY2017PT062568

PATIENT
  Age: 31 Year
  Sex: Male

DRUGS (7)
  1. ACFOL [Concomitant]
     Active Substance: FOLIC ACID
     Indication: CHRONIC KIDNEY DISEASE
     Dosage: 5 MG, QD
     Route: 048
  2. ALLOPURINOL. [Concomitant]
     Active Substance: ALLOPURINOL
     Indication: GOUT
     Dosage: 100 MG, QD
     Route: 048
  3. VITAMIN B COMPLEX [Concomitant]
     Active Substance: CYANOCOBALAMIN\DEXPANTHENOL\NIACINAMIDE\PYRIDOXINE HYDROCHLORIDE\RIBOFLAVIN 5^-PHOSPHATE SODIUM\THIAMINE HYDROCHLORIDE\VITAMIN B COMPLEX
     Indication: CHRONIC KIDNEY DISEASE
     Dosage: 1 DF, QD
     Route: 048
  4. SODIUM BICARBONATE. [Concomitant]
     Active Substance: SODIUM BICARBONATE
     Indication: CHRONIC KIDNEY DISEASE
     Dosage: 2 G, QD
     Route: 048
  5. ALFACALCIDOL [Concomitant]
     Active Substance: ALFACALCIDOL
     Indication: PRODUCT USED FOR UNKNOWN INDICATION
     Route: 065
  6. REVOLADE [Suspect]
     Active Substance: ELTROMBOPAG
     Indication: CONGENITAL THROMBOCYTOPENIA
     Dosage: 50 MG, QD
     Route: 048
     Dates: start: 20170209, end: 20170318
  7. TERBUTALINA [Concomitant]
     Indication: ASTHMA
     Route: 055

REACTIONS (2)
  - Malaise [Recovered/Resolved]
  - Headache [Recovered/Resolved]

NARRATIVE: CASE EVENT DATE: 20170209
